FAERS Safety Report 13986755 (Version 1)
Quarter: 2017Q3

REPORT INFORMATION
  Report Type: Report from Study
  Country: CO (occurrence: CO)
  Receive Date: 20170919
  Receipt Date: 20170919
  Transmission Date: 20171128
  Serious: Yes (Hospitalization, Other)
  Sender: FDA-Public Use
  Company Number: CO-AMGEN-COLSL2017083362

PATIENT
  Age: 57 Year
  Sex: Male

DRUGS (2)
  1. ARANESP [Suspect]
     Active Substance: DARBEPOETIN ALFA
     Dosage: 50 MUG, QWK
     Route: 058
     Dates: start: 2017, end: 20170609
  2. ARANESP [Suspect]
     Active Substance: DARBEPOETIN ALFA
     Indication: NEPHROGENIC ANAEMIA
     Dosage: 50 MUG, Q2WK
     Route: 058
     Dates: start: 20170408

REACTIONS (3)
  - Anaemia [Not Recovered/Not Resolved]
  - Haemoglobin decreased [Recovered/Resolved]
  - Bacteraemia [Unknown]

NARRATIVE: CASE EVENT DATE: 20170503
